FAERS Safety Report 16039521 (Version 2)
Quarter: 2019Q1

REPORT INFORMATION
  Report Type: Spontaneous
  Country: US (occurrence: US)
  Receive Date: 20190306
  Receipt Date: 20190328
  Transmission Date: 20190418
  Serious: No
  Sender: FDA-Public Use
  Company Number: US-BRISTOL-MYERS SQUIBB COMPANY-BMS-2019-023347

PATIENT
  Sex: Female
  Weight: 83.9 kg

DRUGS (1)
  1. ORENCIA [Suspect]
     Active Substance: ABATACEPT
     Indication: RHEUMATOID ARTHRITIS
     Dosage: 750 MG, OVER 1 HOUR AT WEEK 0,2 AND 4 AS DIRECTED
     Route: 042
     Dates: start: 201902

REACTIONS (1)
  - Blood glucose increased [Not Recovered/Not Resolved]
